FAERS Safety Report 9086958 (Version 3)
Quarter: 2013Q2

REPORT INFORMATION
  Report Type: Spontaneous
  Country: DE (occurrence: DE)
  Receive Date: 20130217
  Receipt Date: 20130528
  Transmission Date: 20140414
  Serious: Yes (Other)
  Sender: FDA-Public Use
  Company Number: DE-JNJFOC-20130205889

PATIENT
  Age: 42 Year
  Sex: Male
  Weight: 70 kg

DRUGS (1)
  1. REMICADE [Suspect]
     Indication: CROHN^S DISEASE
     Dosage: APPROXIMATELY IN FEB-2012
     Route: 042
     Dates: start: 201204, end: 201304

REACTIONS (2)
  - Breast cancer [Unknown]
  - Gynaecomastia [Recovering/Resolving]
